FAERS Safety Report 9219719 (Version 2)
Quarter: 2013Q2

REPORT INFORMATION
  Report Type: Spontaneous
  Country: CA (occurrence: CA)
  Receive Date: 20130409
  Receipt Date: 20130531
  Transmission Date: 20140414
  Serious: Yes (Hospitalization)
  Sender: FDA-Public Use
  Company Number: CA-AMGEN-CANSP2013023971

PATIENT
  Age: 66 Year
  Sex: Female
  Weight: 92.3 kg

DRUGS (2)
  1. XGEVA [Suspect]
     Indication: SPINAL CORD NEOPLASM
     Dosage: 120 MG, QMO
     Route: 058
     Dates: start: 20120627
  2. DILAUDID [Concomitant]

REACTIONS (3)
  - Pneumonia [Recovered/Resolved]
  - Atrial flutter [Recovered/Resolved]
  - Malignant pleural effusion [Recovering/Resolving]
